FAERS Safety Report 10792277 (Version 1)
Quarter: 2015Q1

REPORT INFORMATION
  Report Type: Spontaneous
  Country: TR (occurrence: None)
  Receive Date: 20150211
  Receipt Date: 20150211
  Transmission Date: 20150721
  Serious: Yes (Hospitalization)
  Sender: FDA-Public Use
  Company Number: FK201500598

PATIENT
  Age: 24 Year
  Sex: Female
  Weight: 28 kg

DRUGS (1)
  1. LEVOTHYROXINE SODIUM. [Suspect]
     Active Substance: LEVOTHYROXINE SODIUM
     Indication: CONGENITAL HYPOTHYROIDISM

REACTIONS (4)
  - Sleep disorder [None]
  - Decreased appetite [None]
  - Pituitary haemorrhage [None]
  - Palpitations [None]
